FAERS Safety Report 17066404 (Version 3)
Quarter: 2019Q4

REPORT INFORMATION
  Report Type: Spontaneous
  Country: US (occurrence: US)
  Receive Date: 20191122
  Receipt Date: 20191207
  Transmission Date: 20200122
  Serious: Yes (Hospitalization, Other)
  Sender: FDA-Public Use
  Company Number: US-JNJFOC-20191122791

PATIENT
  Age: 23 Day
  Sex: Female

DRUGS (2)
  1. JOHNSONS UNSPECIFIED [Concomitant]
     Indication: PRODUCT USED FOR UNKNOWN INDICATION
     Route: 061
  2. AVEENO BABY DAILY MOISTURE [Suspect]
     Active Substance: DIMETHICONE
     Indication: DRY SKIN PROPHYLAXIS
     Dosage: A LITTLE; ABOUT THE SIZE OF A DIME JUST ONE TIME
     Route: 061
     Dates: start: 20191108, end: 20191108

REACTIONS (3)
  - Pyrexia [Unknown]
  - Hypersensitivity [Unknown]
  - Eating disorder [Unknown]

NARRATIVE: CASE EVENT DATE: 201911
